FAERS Safety Report 5954737-3 (Version None)
Quarter: 2008Q4

REPORT INFORMATION
  Report Type: 
  Country: None (occurrence: None)
  Receive Date: 20081113
  Receipt Date: 20081107
  Transmission Date: 20090506
  Serious: Yes (Other)
  Sender: FDA-Public Use
  Company Number: 2008JP005261

PATIENT
  Age: 43 Year
  Sex: Female

DRUGS (4)
  1. PROGRAF [Suspect]
     Indication: LIVER TRANSPLANT
  2. INTRON A [Concomitant]
  3. RIBAVIRIN [Concomitant]
  4. INTERFERON ALFA-2B [Concomitant]

REACTIONS (12)
  - ANGIOGRAM [None]
  - APHASIA [None]
  - ARTERIOGRAM ABNORMAL [None]
  - BLOOD LACTATE DEHYDROGENASE INCREASED [None]
  - CEREBRAL ARTERY STENOSIS [None]
  - COMPLICATIONS OF TRANSPLANTED LIVER [None]
  - HAEMORRHAGIC CEREBRAL INFARCTION [None]
  - HEMIPLEGIA [None]
  - PLATELET COUNT DECREASED [None]
  - RED BLOOD CELL SCHISTOCYTES PRESENT [None]
  - THROMBOTIC MICROANGIOPATHY [None]
  - ULTRASONIC ANGIOGRAM ABNORMAL [None]
